FAERS Safety Report 14523436 (Version 19)
Quarter: 2025Q3

REPORT INFORMATION
  Report Type: Spontaneous
  Country: EU (occurrence: EU)
  Receive Date: 20180212
  Receipt Date: 20250803
  Transmission Date: 20251020
  Serious: Yes (Hospitalization, Other)
  Sender: ALEXION PHARMACEUTICALS
  Company Number: 2018SE14663

PATIENT
  Age: 75 Year
  Sex: Male
  Weight: 81 kg

DRUGS (48)
  1. QUETIAPINE FUMARATE [Suspect]
     Active Substance: QUETIAPINE FUMARATE
     Dosage: 25 MILLIGRAM, QD
  2. ENOXAPARIN SODIUM [Suspect]
     Active Substance: ENOXAPARIN SODIUM
     Route: 065
  3. ENOXAPARIN SODIUM [Suspect]
     Active Substance: ENOXAPARIN SODIUM
     Route: 065
  4. NADROPARIN [Suspect]
     Active Substance: NADROPARIN
     Indication: Peripheral vein thrombosis
  5. NADROPARIN [Suspect]
     Active Substance: NADROPARIN
     Indication: Off label use
  6. TOCILIZUMAB [Suspect]
     Active Substance: TOCILIZUMAB
     Indication: Vasculitis
     Route: 065
  7. TOCILIZUMAB [Suspect]
     Active Substance: TOCILIZUMAB
     Indication: Rheumatoid arthritis
     Route: 065
  8. TOCILIZUMAB [Suspect]
     Active Substance: TOCILIZUMAB
     Indication: Myalgia
     Route: 065
  9. TOCILIZUMAB [Suspect]
     Active Substance: TOCILIZUMAB
     Indication: Giant cell arteritis
     Route: 065
     Dates: start: 20150706, end: 20171025
  10. TOCILIZUMAB [Suspect]
     Active Substance: TOCILIZUMAB
     Route: 065
     Dates: start: 201704, end: 20171025
  11. TOCILIZUMAB [Suspect]
     Active Substance: TOCILIZUMAB
     Route: 065
  12. TOCILIZUMAB [Suspect]
     Active Substance: TOCILIZUMAB
     Route: 065
  13. TOCILIZUMAB [Suspect]
     Active Substance: TOCILIZUMAB
  14. TOCILIZUMAB [Suspect]
     Active Substance: TOCILIZUMAB
     Dates: start: 20140601, end: 201506
  15. TOCILIZUMAB [Suspect]
     Active Substance: TOCILIZUMAB
     Dates: start: 20140601, end: 201506
  16. TOCILIZUMAB [Suspect]
     Active Substance: TOCILIZUMAB
     Dates: start: 20150706, end: 20171025
  17. TOCILIZUMAB [Suspect]
     Active Substance: TOCILIZUMAB
     Dates: start: 201704, end: 20171025
  18. TOCILIZUMAB [Suspect]
     Active Substance: TOCILIZUMAB
  19. TOCILIZUMAB [Suspect]
     Active Substance: TOCILIZUMAB
  20. TOCILIZUMAB [Suspect]
     Active Substance: TOCILIZUMAB
  21. TOCILIZUMAB [Suspect]
     Active Substance: TOCILIZUMAB
  22. TOCILIZUMAB [Suspect]
     Active Substance: TOCILIZUMAB
     Dates: start: 20190227, end: 20190327
  23. TOCILIZUMAB [Suspect]
     Active Substance: TOCILIZUMAB
     Dates: start: 20190328, end: 20190404
  24. TOCILIZUMAB [Suspect]
     Active Substance: TOCILIZUMAB
  25. CHOLECALCIFEROL [Suspect]
     Active Substance: CHOLECALCIFEROL
     Indication: Osteoporosis
  26. CHOLECALCIFEROL [Suspect]
     Active Substance: CHOLECALCIFEROL
     Indication: Off label use
  27. PROLIA [Suspect]
     Active Substance: DENOSUMAB
     Indication: Osteoporosis
     Dosage: 60 MILLIGRAM, QMONTH
     Dates: start: 201405
  28. PROLIA [Suspect]
     Active Substance: DENOSUMAB
     Indication: Off label use
  29. TOCILIZUMAB [Suspect]
     Active Substance: TOCILIZUMAB
     Indication: Osteoporosis
  30. TOCILIZUMAB [Suspect]
     Active Substance: TOCILIZUMAB
     Indication: Rheumatoid arthritis
     Dosage: 162 MILLIGRAM, BID
  31. TOCILIZUMAB [Suspect]
     Active Substance: TOCILIZUMAB
     Indication: Vasculitis
     Dosage: 162 MG, UNK, EVERY 12 DAYS
  32. TOCILIZUMAB [Suspect]
     Active Substance: TOCILIZUMAB
  33. TOCILIZUMAB [Suspect]
     Active Substance: TOCILIZUMAB
  34. TOCILIZUMAB [Suspect]
     Active Substance: TOCILIZUMAB
     Dosage: 162 MG, UNK
     Dates: start: 20140601, end: 201506
  35. TOCILIZUMAB [Suspect]
     Active Substance: TOCILIZUMAB
     Dosage: 162 MG, UNK
     Dates: start: 20150706, end: 20171025
  36. TOCILIZUMAB [Suspect]
     Active Substance: TOCILIZUMAB
  37. TOCILIZUMAB [Suspect]
     Active Substance: TOCILIZUMAB
  38. CORTISONE ACETATE [Suspect]
     Active Substance: CORTISONE ACETATE
     Indication: Product used for unknown indication
  39. CORTISONE ACETATE [Suspect]
     Active Substance: CORTISONE ACETATE
     Indication: Off label use
  40. PANTOPRAZOLE [Concomitant]
     Active Substance: PANTOPRAZOLE
     Indication: Product used for unknown indication
  41. ESCITALOPRAM [Concomitant]
     Active Substance: ESCITALOPRAM OXALATE
     Indication: Product used for unknown indication
  42. ESCITALOPRAM [Concomitant]
     Active Substance: ESCITALOPRAM OXALATE
  43. ESCITALOPRAM [Concomitant]
     Active Substance: ESCITALOPRAM OXALATE
  44. LISINOPRIL [Concomitant]
     Active Substance: LISINOPRIL
     Indication: Product used for unknown indication
  45. CORTISONE ACETATE [Concomitant]
     Active Substance: CORTISONE ACETATE
     Indication: Product used for unknown indication
  46. AMLODIPINE [Concomitant]
     Active Substance: AMLODIPINE BESYLATE
     Indication: Off label use
     Dosage: 2.5 MILLIGRAM, QD
     Route: 065
  47. AMLODIPINE [Concomitant]
     Active Substance: AMLODIPINE BESYLATE
     Indication: Product used for unknown indication
     Dosage: 5 MILLIGRAM, QD
     Route: 065
  48. NADROPARIN CALCIUM [Concomitant]
     Active Substance: NADROPARIN CALCIUM
     Indication: Peripheral vein thrombosis

REACTIONS (27)
  - Peripheral vein thrombosis [Not Recovered/Not Resolved]
  - Sleep disorder [Unknown]
  - Depression [Not Recovered/Not Resolved]
  - Erysipelas [Recovering/Resolving]
  - Fall [Unknown]
  - Sepsis [Recovering/Resolving]
  - Rash erythematous [Unknown]
  - Wound dehiscence [Recovered/Resolved]
  - Sensitive skin [Unknown]
  - Dysuria [Unknown]
  - Impaired healing [Recovered/Resolved]
  - Lymphocele [Recovered/Resolved]
  - Soft tissue disorder [Recovered/Resolved]
  - Prostate cancer [Recovered/Resolved]
  - Autoimmune disorder [Unknown]
  - Lymphoedema [Recovered/Resolved]
  - Suture rupture [Recovered/Resolved]
  - Acetabulum fracture [Recovering/Resolving]
  - C-reactive protein increased [Recovering/Resolving]
  - Eye inflammation [Not Recovered/Not Resolved]
  - Bronchitis [Not Recovered/Not Resolved]
  - Leukopenia [Recovered/Resolved]
  - Platelet count decreased [Unknown]
  - Angioedema [Recovered/Resolved]
  - Inappropriate schedule of product administration [Unknown]
  - Off label use [Unknown]
  - Product use in unapproved indication [Unknown]

NARRATIVE: CASE EVENT DATE: 20140701
